FAERS Safety Report 7773378-9 (Version None)
Quarter: 2011Q3

REPORT INFORMATION
  Report Type: 
  Country: None (occurrence: None)
  Receive Date: 20110922
  Receipt Date: 20110909
  Transmission Date: 20111222
  Serious: Yes (Other)
  Sender: FDA-Public Use
  Company Number: AR-GENENTECH-321535

PATIENT
  Sex: Female

DRUGS (5)
  1. LUCENTIS [Suspect]
     Indication: MACULAR DEGENERATION
     Dosage: 1 DF, Q3M
     Route: 031
     Dates: start: 20100503
  2. LUCENTIS [Suspect]
     Dosage: 1 DF, Q3M
     Route: 031
  3. LUCENTIS [Suspect]
     Dosage: 0.5 DF, UNK
     Route: 031
     Dates: start: 20110707
  4. LUCENTIS [Suspect]
     Dosage: 1 DF, Q3M
     Route: 031
  5. LUCENTIS [Suspect]
     Dosage: 1 DF, Q3M
     Route: 031
     Dates: start: 20110531

REACTIONS (6)
  - INAPPROPRIATE SCHEDULE OF DRUG ADMINISTRATION [None]
  - MACULAR DEGENERATION [None]
  - VISUAL IMPAIRMENT [None]
  - RETINAL HAEMORRHAGE [None]
  - VISION BLURRED [None]
  - VISUAL ACUITY REDUCED [None]
